FAERS Safety Report 21009874 (Version 1)
Quarter: 2022Q2

REPORT INFORMATION
  Report Type: Spontaneous
  Country: US (occurrence: None)
  Receive Date: 20220626
  Receipt Date: 20220626
  Transmission Date: 20220721
  Serious: Yes (Life-Threatening, Hospitalization, Disabling, Congenital Anomaly, Other)
  Sender: FDA-Public Use
  Company Number: None

PATIENT
  Age: 23 Year
  Sex: Female
  Weight: 58.95 kg

DRUGS (1)
  1. RITODRINE [Suspect]
     Active Substance: RITODRINE
     Indication: Premature labour
     Dates: start: 19851102, end: 19851122

REACTIONS (3)
  - Maternal exposure during pregnancy [None]
  - Foetal exposure during pregnancy [None]
  - Fatigue [None]

NARRATIVE: CASE EVENT DATE: 19851207
